FAERS Safety Report 10509427 (Version 2)
Quarter: 2014Q4

REPORT INFORMATION
  Report Type: Spontaneous
  Country: AU (occurrence: AU)
  Receive Date: 20141009
  Receipt Date: 20141029
  Transmission Date: 20150528
  Serious: Yes (Other)
  Sender: FDA-Public Use
  Company Number: AU-JNJFOC-20141000106

PATIENT
  Age: 53 Year
  Sex: Female

DRUGS (5)
  1. VALIUM [Interacting]
     Active Substance: DIAZEPAM
     Indication: INSOMNIA
     Route: 065
  2. LYRICA [Concomitant]
     Active Substance: PREGABALIN
     Indication: PRODUCT USED FOR UNKNOWN INDICATION
     Route: 065
  3. DUROGESIC [Suspect]
     Active Substance: FENTANYL
     Indication: PAIN
     Route: 062
  4. VALIUM [Interacting]
     Active Substance: DIAZEPAM
     Indication: ANXIETY
     Route: 065
  5. VALIUM [Interacting]
     Active Substance: DIAZEPAM
     Indication: STRESS
     Route: 065

REACTIONS (10)
  - Decreased appetite [Unknown]
  - Pain in extremity [Unknown]
  - Abdominal pain upper [Unknown]
  - Drug ineffective [Unknown]
  - Wrong technique in drug usage process [Unknown]
  - Product quality issue [Unknown]
  - Drug interaction [Unknown]
  - Application site pruritus [Unknown]
  - Diverticulum [Unknown]
  - Malaise [Unknown]
